FAERS Safety Report 12282240 (Version 2)
Quarter: 2016Q2

REPORT INFORMATION
  Report Type: Spontaneous
  Country: US (occurrence: US)
  Receive Date: 20160419
  Receipt Date: 20160601
  Transmission Date: 20160815
  Serious: Yes (Disabling, Other)
  Sender: FDA-Public Use
  Company Number: US-REGENERON PHARMACEUTICALS, INC.-2014-20973

PATIENT

DRUGS (4)
  1. XALATAN [Concomitant]
     Active Substance: LATANOPROST
     Indication: PRODUCT USED FOR UNKNOWN INDICATION
  2. EYLEA [Suspect]
     Active Substance: AFLIBERCEPT
     Indication: NEOVASCULAR AGE-RELATED MACULAR DEGENERATION
     Dosage: 2 MG, MONTHLY (OS)
     Route: 031
     Dates: start: 20140519, end: 20141202
  3. EYLEA [Suspect]
     Active Substance: AFLIBERCEPT
     Dosage: 2 MG, (OD)
     Route: 031
     Dates: start: 20160412
  4. NORVASC [Concomitant]
     Active Substance: AMLODIPINE BESYLATE
     Indication: PRODUCT USED FOR UNKNOWN INDICATION

REACTIONS (10)
  - Vitrectomy [Unknown]
  - Eye pain [Not Recovered/Not Resolved]
  - Vision blurred [Unknown]
  - Photophobia [Unknown]
  - Blindness unilateral [Not Recovered/Not Resolved]
  - Retinal detachment [Unknown]
  - Procedural anxiety [Unknown]
  - Streptococcal infection [Not Recovered/Not Resolved]
  - Intraocular pressure increased [Unknown]
  - Endophthalmitis [Recovered/Resolved]

NARRATIVE: CASE EVENT DATE: 20141203
